FAERS Safety Report 7521428-7 (Version None)
Quarter: 2011Q2

REPORT INFORMATION
  Report Type: 
  Country: None (occurrence: None)
  Receive Date: 20110603
  Receipt Date: 20110519
  Transmission Date: 20111010
  Serious: Yes (Hospitalization)
  Sender: FDA-Public Use
  Company Number: US-JNJFOC-20110509809

PATIENT
  Sex: Male
  Weight: 91.6 kg

DRUGS (11)
  1. TINCTURE OF OPIUM [Concomitant]
  2. VITAMIN B-12 [Concomitant]
     Route: 048
  3. LOMOTIL [Concomitant]
  4. TRIAMTERENE AND HCTZ [Concomitant]
     Dosage: DOSE 37.5/25MG 1 1/2 TABLET ONCE DAILY
     Route: 048
  5. ASPIRIN [Concomitant]
     Dates: end: 20070805
  6. PAROXETINE HCL [Concomitant]
     Route: 048
  7. ATENOLOL [Concomitant]
     Route: 048
  8. MORPHINE [Concomitant]
  9. INFLIXIMAB, RECOMBINANT [Suspect]
     Indication: CROHN'S DISEASE
     Route: 042
  10. INFLIXIMAB, RECOMBINANT [Suspect]
     Route: 042
     Dates: start: 20071001
  11. SIMVASTATIN [Concomitant]
     Route: 048

REACTIONS (1)
  - RECTAL CANCER [None]
